FAERS Safety Report 23517227 (Version 3)
Quarter: 2024Q1

REPORT INFORMATION
  Report Type: Spontaneous
  Country: US (occurrence: US)
  Receive Date: 20240213
  Receipt Date: 20240304
  Transmission Date: 20240410
  Serious: No
  Sender: FDA-Public Use
  Company Number: US-BAYER-2024A016749

PATIENT
  Age: 62 Year
  Sex: Female

DRUGS (4)
  1. BETASERON [Suspect]
     Active Substance: INTERFERON BETA-1B
     Indication: Multiple sclerosis
     Dosage: 1 ML, QOD
     Route: 058
     Dates: start: 2004
  2. BETASERON [Suspect]
     Active Substance: INTERFERON BETA-1B
     Indication: Multiple sclerosis
     Dosage: UNK
  3. BETASERON [Suspect]
     Active Substance: INTERFERON BETA-1B
     Indication: Multiple sclerosis
     Dosage: 1 ML, QOD
     Route: 058
  4. IBUPROFEN [Concomitant]
     Active Substance: IBUPROFEN
     Indication: Prophylaxis
     Dosage: 800 MG, 2 HOURS PRIOR TO INJECTION
     Route: 048

REACTIONS (8)
  - Product dose omission issue [None]
  - Fall [None]
  - Arthritis [Unknown]
  - Arthralgia [Unknown]
  - Tremor [Recovered/Resolved]
  - Influenza like illness [None]
  - Injection site erythema [Not Recovered/Not Resolved]
  - Tremor [Not Recovered/Not Resolved]

NARRATIVE: CASE EVENT DATE: 20240210
